FAERS Safety Report 8489872-1 (Version None)
Quarter: 2012Q3

REPORT INFORMATION
  Report Type: 
  Country: None (occurrence: None)
  Receive Date: 20120705
  Receipt Date: 20120629
  Transmission Date: 20120928
  Serious: Yes (Hospitalization)
  Sender: FDA-Public Use
  Company Number: PHHY2012US056088

PATIENT
  Age: 60 Year
  Sex: Female

DRUGS (3)
  1. ASPIRIN [Concomitant]
  2. AMLODIPINE [Suspect]
     Indication: HYPERTENSION
     Dosage: 10 MG, BID
     Route: 048
  3. METOPROLOL SUCCINATE [Concomitant]

REACTIONS (12)
  - ABDOMINAL RIGIDITY [None]
  - ABDOMINAL DISTENSION [None]
  - ABDOMINAL TENDERNESS [None]
  - HYPOTENSION [None]
  - RESPIRATORY FAILURE [None]
  - ILEUS PARALYTIC [None]
  - CARDIOGENIC SHOCK [None]
  - SMALL INTESTINAL OBSTRUCTION [None]
  - ABDOMINAL PAIN [None]
  - VOMITING [None]
  - LACTIC ACIDOSIS [None]
  - OVERDOSE [None]
